FAERS Safety Report 20937799 (Version 1)
Quarter: 2022Q2

REPORT INFORMATION
  Report Type: Spontaneous
  Country: US (occurrence: US)
  Receive Date: 20220609
  Receipt Date: 20220609
  Transmission Date: 20220721
  Serious: No
  Sender: FDA-Public Use
  Company Number: US-AMGEN-USASP2022098983

PATIENT
  Sex: Male

DRUGS (1)
  1. OTEZLA [Suspect]
     Active Substance: APREMILAST
     Indication: Nicotine dependence
     Dosage: 30 MILLIGRAM, BID
     Route: 048
     Dates: start: 20210510

REACTIONS (1)
  - Product dose omission issue [Unknown]
